FAERS Safety Report 25156199 (Version 1)
Quarter: 2025Q2

REPORT INFORMATION
  Report Type: Spontaneous
  Country: DE (occurrence: DE)
  Receive Date: 20250403
  Receipt Date: 20250403
  Transmission Date: 20250716
  Serious: Yes (Hospitalization)
  Sender: AMGEN
  Company Number: DE-002147023-NVSC2025DE053175

PATIENT
  Age: 35 Year
  Sex: Male

DRUGS (1)
  1. AIMOVIG [Suspect]
     Active Substance: ERENUMAB-AOOE
     Indication: Migraine
     Route: 065

REACTIONS (2)
  - Intestinal obstruction [Recovered/Resolved]
  - Constipation [Recovered/Resolved]
